FAERS Safety Report 19804376 (Version 1)
Quarter: 2021Q3

REPORT INFORMATION
  Report Type: Spontaneous
  Country: US (occurrence: US)
  Receive Date: 20210908
  Receipt Date: 20210908
  Transmission Date: 20211014
  Serious: No
  Sender: FDA-Public Use
  Company Number: US-FARMAPROD-202105-0823

PATIENT
  Sex: Male

DRUGS (4)
  1. OXERVATE [Suspect]
     Active Substance: CENEGERMIN-BKBJ
     Indication: ULCERATIVE KERATITIS
  2. ZIRGAN [Concomitant]
     Active Substance: GANCICLOVIR
  3. ACICLOVIR [Concomitant]
     Active Substance: ACYCLOVIR
     Route: 048
  4. OXERVATE [Suspect]
     Active Substance: CENEGERMIN-BKBJ
     Indication: NEUROTROPHIC KERATOPATHY
     Route: 047
     Dates: start: 20210517

REACTIONS (5)
  - Eye swelling [Unknown]
  - Eye discharge [Unknown]
  - Herpes ophthalmic [Unknown]
  - Eye pain [Unknown]
  - Vision blurred [Unknown]
